FAERS Safety Report 5679152-1 (Version None)
Quarter: 2008Q1

REPORT INFORMATION
  Report Type: 
  Country: None (occurrence: None)
  Receive Date: 20080325
  Receipt Date: 20080314
  Transmission Date: 20080703
  Serious: Yes (Hospitalization, Other)
  Sender: FDA-Public Use
  Company Number: JP-JNJFOC-20071206280

PATIENT
  Sex: Female
  Weight: 48 kg

DRUGS (19)
  1. REMICADE [Suspect]
     Indication: CROHN'S DISEASE
     Route: 042
  2. PREDONINE [Suspect]
     Indication: CROHN'S DISEASE
     Route: 042
  3. IMURAN [Suspect]
     Indication: CROHN'S DISEASE
     Route: 048
  4. OMEPRAL [Concomitant]
     Indication: CROHN'S DISEASE
     Route: 042
  5. BUSCOPAN [Concomitant]
     Indication: ABDOMINAL PAIN
     Route: 042
  6. BUSCOPAN [Concomitant]
     Indication: CROHN'S DISEASE
     Route: 042
  7. TOLEDOMIN [Concomitant]
     Indication: DEPRESSION
     Route: 048
  8. VEGETAMIN A [Concomitant]
     Indication: DEPRESSION
     Route: 048
  9. FLAGYL [Concomitant]
     Indication: CROHN'S DISEASE
     Route: 048
  10. MODACIN [Concomitant]
     Indication: ABSCESS
     Route: 042
  11. DALACIN S [Concomitant]
     Indication: ABSCESS
  12. MEILAX [Concomitant]
     Indication: DEPRESSION
     Route: 048
  13. MIYA BM [Concomitant]
     Indication: CROHN'S DISEASE
     Route: 048
  14. DOGMATYL [Concomitant]
     Indication: DEPRESSION
     Route: 048
  15. PENTASA [Concomitant]
     Indication: CROHN'S DISEASE
     Route: 048
  16. CALCIUM LACTATE [Concomitant]
     Indication: DIARRHOEA
     Route: 048
  17. CALCIUM LACTATE [Concomitant]
     Indication: CROHN'S DISEASE
     Route: 048
  18. ALFAROL [Concomitant]
     Indication: OSTEOPOROSIS
     Route: 048
  19. PENTAGIN [Concomitant]
     Indication: CROHN'S DISEASE
     Route: 042

REACTIONS (4)
  - APPENDICITIS [None]
  - ILEUS [None]
  - IMMUNOSUPPRESSION [None]
  - WHITE BLOOD CELL COUNT DECREASED [None]
